FAERS Safety Report 9539502 (Version 1)
Quarter: 2013Q2

REPORT INFORMATION
  Report Type: Spontaneous
  Country: US (occurrence: None)
  Receive Date: 20130521
  Receipt Date: 20130521
  Transmission Date: 20140414
  Serious: No
  Sender: FDA-Public Use
  Company Number: 1000043904

PATIENT
  Age: 67 Year
  Sex: Female

DRUGS (13)
  1. TUDORZA PRESSAIR (ACLIDINIUM BROMIDE) (400 MICROGRAM, POWDER) [Suspect]
     Indication: CHRONIC OBSTRUCTIVE PULMONARY DISEASE
     Dosage: 400 MCG, 2 IN 1 D, RESPIRATORY (INHALATION)
     Dates: start: 20130328
  2. DULERA (DULERA) (DULERA) [Concomitant]
  3. RESTASIS (CICLOSPORIN) (EYE DROPS) (CICLOSPORIN) [Concomitant]
  4. PRILOSEC (OMEPRAZOLE) (OMEPRAZOLE) [Concomitant]
  5. ALDACTONE (SPIRONOLACTONE) (25 MILLIGRAM) (SPIRNOLACTONE) [Concomitant]
  6. DIOVAN (VALSARTAN ) (80 MILLIGRAM) (VALSARTAN) [Concomitant]
  7. TOPROL (METOPROLOL SUCCINATE) (METOPROLOL SUCCINATE) [Concomitant]
  8. XOPENEX (LEVOSALBUTAMOL HYDROCHLORIDE) (LEVOSALBUTAMOL HYDROCHLORIDE) [Concomitant]
  9. CLONOPIN (CLONZEPAM) (CLONAZEPAM) [Concomitant]
  10. VAGIFEM (ESTRADIOL) (ESTRADIOL) [Concomitant]
  11. VANICREAM (VANICREAM) (VANICREAM) [Concomitant]
  12. MICRO K (POTASSIUM CHLORIDE) (POTASSIUM CHLORIDE) [Concomitant]
  13. MAGNESIUM (MAGNESIUM) (MAGNESIUM) [Concomitant]

REACTIONS (1)
  - Vision blurred [None]
